FAERS Safety Report 5812660-9 (Version None)
Quarter: 2008Q3

REPORT INFORMATION
  Report Type: 
  Country: None (occurrence: None)
  Receive Date: 20080717
  Receipt Date: 20080707
  Transmission Date: 20090109
  Serious: Yes (Hospitalization, Other)
  Sender: FDA-Public Use
  Company Number: US-ALLERGAN-0808282US

PATIENT
  Age: 52 Year
  Sex: Male

DRUGS (4)
  1. ALPHAGAN P [Suspect]
     Indication: OCULAR HYPERTENSION
     Dosage: 1 GTT, BID
     Route: 047
     Dates: start: 20080603, end: 20080703
  2. IMDUR [Suspect]
     Indication: CHEST PAIN
     Dosage: 30 MG, SINGLE
     Route: 048
     Dates: start: 20080705, end: 20080705
  3. ZETIA [Concomitant]
     Indication: BLOOD CHOLESTEROL
     Dosage: 10 MG, QD
     Route: 048
  4. TRAVATAN [Concomitant]
     Indication: OCULAR HYPERTENSION
     Dosage: 1 GTT, BID
     Route: 047

REACTIONS (10)
  - BLOOD PRESSURE DECREASED [None]
  - BLOOD PRESSURE INCREASED [None]
  - CHEST PAIN [None]
  - DIZZINESS [None]
  - DYSPNOEA [None]
  - HEADACHE [None]
  - HYPERHIDROSIS [None]
  - NAUSEA [None]
  - PAIN IN EXTREMITY [None]
  - PALPITATIONS [None]
